FAERS Safety Report 26004747 (Version 1)
Quarter: 2025Q4

REPORT INFORMATION
  Report Type: Spontaneous
  Country: CN (occurrence: CN)
  Receive Date: 20251106
  Receipt Date: 20251106
  Transmission Date: 20260118
  Serious: Yes (Other)
  Sender: GE HEALTHCARE
  Company Number: None

PATIENT
  Age: 82 Year
  Sex: Male
  Weight: 75 kg

DRUGS (2)
  1. VISIPAQUE [Suspect]
     Active Substance: IODIXANOL
     Indication: Angiogram cerebral
     Dosage: 200 ML, TOTAL
     Route: 013
     Dates: start: 20251027, end: 20251027
  2. VISIPAQUE [Suspect]
     Active Substance: IODIXANOL
     Indication: Interventional procedure

REACTIONS (8)
  - Burning sensation [Recovering/Resolving]
  - Gastrooesophageal reflux disease [Recovered/Resolved]
  - Oesophageal irritation [Recovering/Resolving]
  - Dysgeusia [Recovering/Resolving]
  - Abdominal discomfort [Recovering/Resolving]
  - Cough [Recovering/Resolving]
  - Vomiting [Recovering/Resolving]
  - Nausea [Recovered/Resolved]

NARRATIVE: CASE EVENT DATE: 20251027
